FAERS Safety Report 8224677-8 (Version None)
Quarter: 2012Q1

REPORT INFORMATION
  Report Type: 
  Country: None (occurrence: None)
  Receive Date: 20120321
  Receipt Date: 20120319
  Transmission Date: 20120608
  Serious: Yes (Other)
  Sender: FDA-Public Use
  Company Number: IT-BAYER-2012-027010

PATIENT
  Age: 46 Year
  Sex: Male

DRUGS (1)
  1. ASPIRIN [Suspect]
     Dosage: 325 MG, ONCE
     Route: 048
     Dates: start: 20110928, end: 20110928

REACTIONS (4)
  - OEDEMA PERIPHERAL [None]
  - ANGIOEDEMA [None]
  - FACE OEDEMA [None]
  - PRURITUS [None]
